FAERS Safety Report 7257025-0 (Version None)
Quarter: 2011Q1

REPORT INFORMATION
  Report Type: 
  Country: None (occurrence: None)
  Receive Date: 20110129
  Receipt Date: 20100729
  Transmission Date: 20110831
  Serious: No
  Sender: FDA-Public Use
  Company Number: US-ABBOTT-10P-163-0660743-00

PATIENT
  Age: 29 Year
  Sex: Female

DRUGS (8)
  1. ALLEGRA D 24 HOUR [Concomitant]
     Indication: HYPERSENSITIVITY
  2. MULTI-VITAMIN [Concomitant]
     Indication: PRODUCT USED FOR UNKNOWN INDICATION
  3. HUMIRA [Suspect]
     Indication: CROHN'S DISEASE
     Route: 058
     Dates: start: 20100612
  4. EFFEXOPHENIDINE [Concomitant]
     Indication: PRODUCT USED FOR UNKNOWN INDICATION
     Route: 048
  5. JUNELL FE 1/20 [Concomitant]
     Indication: CONTRACEPTION
  6. ENDOCORT EC [Concomitant]
     Indication: PRODUCT USED FOR UNKNOWN INDICATION
     Route: 048
  7. IRON [Concomitant]
     Indication: VITAMIN SUPPLEMENTATION
     Route: 048
  8. PALMOCORT/MUCOPROSET [Concomitant]
     Indication: PRODUCT USED FOR UNKNOWN INDICATION
     Dosage: SPRAY
     Route: 045

REACTIONS (2)
  - GASTRITIS [None]
  - ABDOMINAL PAIN [None]
